FAERS Safety Report 8086933-6 (Version None)
Quarter: 2012Q1

REPORT INFORMATION
  Report Type: 
  Country: None (occurrence: None)
  Receive Date: 20120128
  Receipt Date: 20110614
  Transmission Date: 20120608
  Serious: No
  Sender: FDA-Public Use
  Company Number: US-ABBOTT-11P-163-0732746-00

PATIENT
  Sex: Female
  Weight: 80.812 kg

DRUGS (4)
  1. HUMIRA [Suspect]
     Indication: RHEUMATOID ARTHRITIS
     Route: 058
     Dates: start: 20080101, end: 20110522
  2. CELEBREX [Concomitant]
     Indication: ARTHRALGIA
     Dosage: UNREPORTED AMOUNT DAILY
     Route: 048
     Dates: start: 20070101, end: 20110331
  3. NEXIUM [Concomitant]
     Indication: GASTROOESOPHAGEAL REFLUX DISEASE
     Route: 048
  4. ASPIRIN [Concomitant]
     Indication: PROPHYLAXIS
     Route: 048
     Dates: end: 20110331

REACTIONS (5)
  - CYST [None]
  - CARTILAGE INJURY [None]
  - GAIT DISTURBANCE [None]
  - CONTUSION [None]
  - ARTHRALGIA [None]
